FAERS Safety Report 10513892 (Version 2)
Quarter: 2014Q4

REPORT INFORMATION
  Report Type: Spontaneous
  Country: AR (occurrence: AR)
  Receive Date: 20141013
  Receipt Date: 20141029
  Transmission Date: 20150528
  Serious: Yes (Death, Hospitalization, Other)
  Sender: FDA-Public Use
  Company Number: AR-ALEXION PHARMACEUTICALS INC-A201403856

PATIENT

DRUGS (2)
  1. SOLIRIS [Suspect]
     Active Substance: ECULIZUMAB
     Indication: PAROXYSMAL NOCTURNAL HAEMOGLOBINURIA
     Dosage: 900 MG, Q2W
     Route: 042
     Dates: start: 20130628, end: 20141001
  2. ACENOCUMAROL [Concomitant]
     Active Substance: ACENOCOUMAROL
     Indication: ARTERIAL THROMBOSIS
     Dosage: 1.5 MG, UNK
     Route: 048
     Dates: start: 2011

REACTIONS (10)
  - Diarrhoea [Unknown]
  - Vomiting [Unknown]
  - Pyrexia [Unknown]
  - Septic shock [Fatal]
  - Hypotension [Unknown]
  - Cardio-respiratory arrest [Unknown]
  - Respiratory failure [Unknown]
  - Pneumonia [Fatal]
  - Pulmonary haemorrhage [Unknown]
  - Haemolysis [Unknown]

NARRATIVE: CASE EVENT DATE: 2014
